FAERS Safety Report 8613271-2 (Version None)
Quarter: 2012Q3

REPORT INFORMATION
  Report Type: 
  Country: None (occurrence: None)
  Receive Date: 20120822
  Receipt Date: 20120803
  Transmission Date: 20120928
  Serious: Yes (Other)
  Sender: FDA-Public Use
  Company Number: JP-009507513-2012SP028023

PATIENT

DRUGS (6)
  1. REBETOL [Suspect]
     Indication: HEPATITIS C
     Dosage: 400 MG, QD
     Route: 048
     Dates: start: 20120411, end: 20120509
  2. URSO 250 [Concomitant]
     Indication: HEPATITIS C
     Dosage: UPDATE(29JUN2012):FORMULATION:POR
     Route: 048
     Dates: end: 20120425
  3. TELAVIC [Suspect]
     Indication: HEPATITIS C
     Route: 048
     Dates: start: 20120411, end: 20120509
  4. PEG-INTRON [Suspect]
     Indication: HEPATITIS C
     Dosage: 1.15 MCG/KG/WEEK
     Route: 058
     Dates: start: 20120411, end: 20120509
  5. ANTIVIRAL (UNSPECIFIED) [Suspect]
     Indication: HEPATITIS C
     Dosage: 1500 MG, QD
     Route: 048
     Dates: start: 20120411, end: 20120509
  6. LOXOPROFEN [Concomitant]
     Indication: PROPHYLAXIS
     Dosage: 60 MG/DAY, AS NEEDED.
     Route: 048
     Dates: start: 20120411

REACTIONS (2)
  - RASH [None]
  - PRURITUS [None]
